FAERS Safety Report 21641029 (Version 4)
Quarter: 2023Q1

REPORT INFORMATION
  Report Type: Report from Study
  Country: US (occurrence: US)
  Receive Date: 20221125
  Receipt Date: 20230112
  Transmission Date: 20230417
  Serious: Yes (Hospitalization, Other)
  Sender: FDA-Public Use
  Company Number: US-ABBVIE-4213141

PATIENT
  Sex: Female

DRUGS (2)
  1. IMBRUVICA [Suspect]
     Active Substance: IBRUTINIB
     Indication: Chronic lymphocytic leukaemia
     Route: 048
  2. IMBRUVICA [Suspect]
     Active Substance: IBRUTINIB
     Indication: Chronic lymphocytic leukaemia
     Route: 048
     Dates: start: 20210507

REACTIONS (7)
  - Stress cardiomyopathy [Unknown]
  - Brain injury [Unknown]
  - Myocardial infarction [Unknown]
  - Cardiomyopathy [Unknown]
  - Fall [Unknown]
  - Stress [Unknown]
  - Cerebral haemorrhage [Unknown]
